FAERS Safety Report 5386886-5 (Version None)
Quarter: 2007Q3

REPORT INFORMATION
  Report Type: 
  Country: None (occurrence: None)
  Receive Date: 20070713
  Receipt Date: 20070704
  Transmission Date: 20080115
  Serious: Yes (Hospitalization, Other)
  Sender: FDA-Public Use
  Company Number: GB-PFIZER INC-2007051162

PATIENT
  Age: 55 Year
  Sex: Female

DRUGS (10)
  1. GABAPENTIN [Suspect]
     Indication: NEURALGIA
  2. ISOFLURANE [Interacting]
  3. SEVOFLURANE [Interacting]
  4. ANAESTHETICS, GENERAL [Interacting]
  5. CODEINE PHOSPHATE [Concomitant]
  6. PARACETAMOL [Concomitant]
  7. CODEINE SUL TAB [Concomitant]
  8. DEXAMETHASONE 0.5MG TAB [Concomitant]
  9. FENTANYL TRANSDERMAL SYSTEM [Concomitant]
  10. OXYGEN [Concomitant]

REACTIONS (4)
  - DRUG INTERACTION [None]
  - DYSTONIA [None]
  - MYOTONIA [None]
  - SINUS TACHYCARDIA [None]
